FAERS Safety Report 9848019 (Version 1)
Quarter: 2013Q4

REPORT INFORMATION
  Report Type: Spontaneous
  Country: US (occurrence: None)
  Receive Date: 20131226
  Receipt Date: 20131226
  Transmission Date: 20140711
  Serious: Yes (Other)
  Sender: FDA-Public Use
  Company Number: PHEH2013US003984

PATIENT
  Sex: 0

DRUGS (3)
  1. TEKTURNA HCT [Suspect]
  2. TEKTURNA (ALISKIREN) UNKNOWN [Suspect]
  3. VALTURNA [Suspect]

REACTIONS (1)
  - Renal failure [None]
